FAERS Safety Report 10597068 (Version 1)
Quarter: 2014Q4

REPORT INFORMATION
  Report Type: Other
  Country: DE (occurrence: DE)
  Receive Date: 20141121
  Receipt Date: 20141121
  Transmission Date: 20150529
  Serious: Yes (Other)
  Sender: FDA-Public Use
  Company Number: DE-GLENMARK GENERICS INC.-2014GMK012057

PATIENT
  Age: 34 Year
  Sex: Female
  Weight: 63 kg

DRUGS (11)
  1. PERFALGAN [Concomitant]
     Active Substance: ACETAMINOPHEN
     Dosage: UNK
     Route: 042
     Dates: start: 20140510, end: 20140514
  2. TOPIRAMAT [Suspect]
     Active Substance: TOPIRAMATE
     Dosage: 150 MG, QD OR DOSAGE BETWEEN 150 MG DAILY AND 25 MG DAILY
     Route: 048
     Dates: start: 20140515, end: 20140905
  3. ALLEGRO                            /01623202/ [Concomitant]
     Dosage: 25 MG, OD
     Route: 048
     Dates: start: 20140506, end: 20140527
  4. SUMATRIPTAN. [Concomitant]
     Active Substance: SUMATRIPTAN
     Dosage: 100 MG, OD
     Route: 048
     Dates: start: 20140701, end: 20140730
  5. NOVALGIN [Concomitant]
     Active Substance: METAMIZOLE SODIUM
     Dosage: UNK
     Route: 042
     Dates: start: 20140510, end: 20140514
  6. RELPAX [Concomitant]
     Active Substance: ELETRIPTAN HYDROBROMIDE
     Dosage: 40 MG, OD
     Route: 048
     Dates: start: 20140528, end: 20140612
  7. OMEPRAZOL                          /00661201/ [Concomitant]
     Active Substance: OMEPRAZOLE
     Dosage: 20 MG, OD OR MAY BE LONGER
     Route: 048
     Dates: start: 20140506, end: 20140818
  8. FOLIO FORTE [Concomitant]
     Active Substance: FOLIC ACID\VITAMINS
     Dosage: 0.8 MG, OD
     Route: 048
  9. ASPIRIN. [Concomitant]
     Active Substance: ASPIRIN
     Dosage: 100 MG, OD
     Route: 048
     Dates: start: 20140525, end: 20140525
  10. MAXALT [Concomitant]
     Active Substance: RIZATRIPTAN BENZOATE
     Dosage: 20 MG, QD, IF REQUIRED 10 OR 20 MG/D;EXPOSURE
     Route: 048
     Dates: start: 20140510, end: 20140703
  11. DORMICUM                           /00634102/ [Concomitant]
     Dosage: UNK
     Route: 042
     Dates: start: 20140510, end: 20140514

REACTIONS (1)
  - Abortion missed [Recovered/Resolved]
